FAERS Safety Report 6338728-9 (Version None)
Quarter: 2009Q3

REPORT INFORMATION
  Report Type: 
  Country: None (occurrence: None)
  Receive Date: 20090903
  Receipt Date: 20090318
  Transmission Date: 20100115
  Serious: No
  Sender: FDA-Public Use
  Company Number: A0774038A

PATIENT
  Age: 14 Year
  Sex: Male

DRUGS (1)
  1. RELENZA [Suspect]
     Dosage: 2PUFF TWICE PER DAY
     Route: 055
     Dates: start: 20090310, end: 20090310

REACTIONS (7)
  - AREFLEXIA [None]
  - CONFUSIONAL STATE [None]
  - HYPOAESTHESIA [None]
  - PARAESTHESIA [None]
  - SENSORY LOSS [None]
  - STARING [None]
  - THERAPEUTIC RESPONSE UNEXPECTED [None]
